FAERS Safety Report 11144490 (Version 1)
Quarter: 2015Q2

REPORT INFORMATION
  Report Type: Spontaneous
  Country: GB (occurrence: GB)
  Receive Date: 20150526
  Receipt Date: 20150526
  Transmission Date: 20150821
  Serious: Yes (Other)
  Sender: FDA-Public Use
  Company Number: GB-TEVA-563509ACC

PATIENT
  Age: 49 Year
  Sex: Female
  Weight: 63.5 kg

DRUGS (3)
  1. VITAMIN AND MINERAL SUPPLEMENT [Concomitant]
  2. MIRTAZAPINE. [Suspect]
     Active Substance: MIRTAZAPINE
     Indication: BIPOLAR DISORDER
     Dosage: 15-30MG
     Route: 048
     Dates: start: 2012, end: 20150301
  3. IMIGRAN [Concomitant]
     Active Substance: SUMATRIPTAN SUCCINATE

REACTIONS (16)
  - Appetite disorder [Recovering/Resolving]
  - Oedema peripheral [Recovered/Resolved]
  - Dry skin [Recovered/Resolved]
  - Pruritus [Recovered/Resolved]
  - Condition aggravated [Unknown]
  - Migraine [Recovered/Resolved]
  - Constipation [Not Recovered/Not Resolved]
  - Tremor [Recovered/Resolved]
  - Dry eye [Recovered/Resolved with Sequelae]
  - Nausea [Recovering/Resolving]
  - Haemorrhoids [Unknown]
  - Eye pruritus [Recovered/Resolved with Sequelae]
  - Restless legs syndrome [Recovered/Resolved]
  - Thirst [Recovering/Resolving]
  - Blepharitis [Recovering/Resolving]
  - Premature ageing [Unknown]

NARRATIVE: CASE EVENT DATE: 2012
